FAERS Safety Report 9281395 (Version 1)
Quarter: 2013Q2

REPORT INFORMATION
  Report Type: Spontaneous
  Country: FR (occurrence: None)
  Receive Date: 20130502
  Receipt Date: 20130502
  Transmission Date: 20140414
  Serious: Yes (Hospitalization)
  Sender: FDA-Public Use
  Company Number: SYM-2013-03131

PATIENT
  Age: 59 Year
  Sex: Male

DRUGS (2)
  1. FLAGYL [Suspect]
     Indication: COLITIS
     Dates: start: 20130116, end: 20130123
  2. ROCEPHIN [Suspect]
     Indication: COLITIS
     Dosage: INTRAVENOUS (NOT OTHERWISE SPECIFIED)?
     Route: 042
     Dates: start: 20130116, end: 20130122

REACTIONS (5)
  - Hepatitis cholestatic [None]
  - Septic shock [None]
  - Motor dysfunction [None]
  - Escherichia test positive [None]
  - Meningitis bacterial [None]
